FAERS Safety Report 11534648 (Version 3)
Quarter: 2015Q4

REPORT INFORMATION
  Report Type: Report from Study
  Country: US (occurrence: US)
  Receive Date: 20150922
  Receipt Date: 20151113
  Transmission Date: 20160304
  Serious: Yes (Death, Hospitalization, Other)
  Sender: FDA-Public Use
  Company Number: US-AMGEN-USASL2015095949

PATIENT
  Age: 68 Year
  Sex: Male
  Weight: 60.31 kg

DRUGS (7)
  1. PROGRAF [Concomitant]
     Active Substance: TACROLIMUS\TACROLIMUS ANHYDROUS
     Dosage: 2 CAPSULES TWICE A DAY
     Route: 048
  2. LIDOCAINE. [Concomitant]
     Active Substance: LIDOCAINE
     Dosage: UNK
  3. INSULIN GLARGINE [Concomitant]
     Active Substance: INSULIN GLARGINE
     Dosage: 3 ML, AS NEEDED
  4. FAMOTIDINE. [Concomitant]
     Active Substance: FAMOTIDINE
     Dosage: ONE TABLET TWICE DAILY
     Route: 048
     Dates: start: 20150415
  5. PROCRIT [Suspect]
     Active Substance: ERYTHROPOIETIN
     Indication: PRODUCT USED FOR UNKNOWN INDICATION
     Dosage: UNK, WEEKLY
     Route: 065
  6. MYFORTIC [Concomitant]
     Active Substance: MYCOPHENOLATE SODIUM
     Dosage: 1 TABLET TWICE A DAY
     Route: 048
  7. TIROSINT [Concomitant]
     Active Substance: LEVOTHYROXINE SODIUM
     Dosage: 1 CAPSULE EVERY MORNING

REACTIONS (23)
  - Ascites [Unknown]
  - Chronic kidney disease [Unknown]
  - Haemochromatosis [Unknown]
  - Microalbuminuria [Unknown]
  - Vitamin D deficiency [Unknown]
  - Oedema peripheral [Unknown]
  - Skin disorder [Unknown]
  - Hypothyroidism [Unknown]
  - Rosacea [Unknown]
  - Crohn^s disease [Unknown]
  - Anaemia [Unknown]
  - Nocturia [Unknown]
  - Dizziness [Unknown]
  - Leukocytosis [Unknown]
  - Chest pain [Not Recovered/Not Resolved]
  - Oedema [Recovered/Resolved]
  - Headache [Unknown]
  - Myelodysplastic syndrome [Unknown]
  - Myelofibrosis [Unknown]
  - Type 2 diabetes mellitus [Unknown]
  - Death [Fatal]
  - Hepatic cirrhosis [Unknown]
  - Chills [Unknown]
